FAERS Safety Report 4895458-8 (Version None)
Quarter: 2006Q1

REPORT INFORMATION
  Report Type: 
  Country: None (occurrence: None)
  Receive Date: 20060130
  Receipt Date: 20051202
  Transmission Date: 20060701
  Serious: Yes (Death)
  Sender: FDA-Public Use
  Company Number: 2005SE06969

PATIENT
  Age: 26214 Day
  Sex: Male
  Weight: 80 kg

DRUGS (5)
  1. RATACAND ZID [Suspect]
     Indication: HYPERTENSION
     Dosage: 16 + 12.5 MG DAILY
     Route: 048
     Dates: start: 20050726, end: 20050912
  2. FUROSEMIDE [Concomitant]
  3. DIGOXIN [Concomitant]
  4. DIMITONE [Concomitant]
  5. KALEORID [Concomitant]

REACTIONS (15)
  - AORTIC VALVE STENOSIS [None]
  - ATRIAL FIBRILLATION [None]
  - AZOTAEMIA [None]
  - BRONCHIECTASIS [None]
  - CARDIAC ARREST [None]
  - CARDIAC INFECTION [None]
  - DYSPNOEA EXACERBATED [None]
  - FOOD AVERSION [None]
  - LIVER DISORDER [None]
  - LIVER FUNCTION TEST ABNORMAL [None]
  - OLIGURIA [None]
  - PERICARDITIS [None]
  - PULMONARY OEDEMA [None]
  - SPLEEN DISORDER [None]
  - VENTRICULAR HYPERTROPHY [None]
